FAERS Safety Report 13660467 (Version 1)
Quarter: 2017Q2

REPORT INFORMATION
  Report Type: Spontaneous
  Country: US (occurrence: US)
  Receive Date: 20170615
  Receipt Date: 20170615
  Transmission Date: 20170830
  Serious: Yes (Other)
  Sender: FDA-Public Use
  Company Number: None

PATIENT
  Age: 36 Year
  Sex: Female
  Weight: 74.25 kg

DRUGS (1)
  1. GILENYA [Suspect]
     Active Substance: FINGOLIMOD HYDROCHLORIDE
     Indication: MULTIPLE SCLEROSIS
     Dosage: ?          QUANTITY:30 CAPSULE(S);?
     Route: 048

REACTIONS (4)
  - Malaise [None]
  - Herpes zoster [None]
  - Immune system disorder [None]
  - Fatigue [None]

NARRATIVE: CASE EVENT DATE: 20170501
